FAERS Safety Report 18573179 (Version 1)
Quarter: 2020Q4

REPORT INFORMATION
  Report Type: Spontaneous
  Country: US (occurrence: US)
  Receive Date: 20201203
  Receipt Date: 20201203
  Transmission Date: 20210114
  Serious: Yes (Other)
  Sender: FDA-Public Use
  Company Number: US-DOVA PHARMACEUTICALS INC.-DOV-000742

PATIENT
  Sex: Female

DRUGS (4)
  1. NIRAPARIB [Suspect]
     Active Substance: NIRAPARIB
     Indication: METASTASES TO CENTRAL NERVOUS SYSTEM
  2. NIRAPARIB [Suspect]
     Active Substance: NIRAPARIB
     Indication: BREAST CANCER STAGE III
     Dosage: 300 MILLIGRAM, QD
     Dates: start: 201911
  3. DOPTELET [Suspect]
     Active Substance: AVATROMBOPAG MALEATE
     Indication: THROMBOCYTOPENIA
     Dosage: 20 MILLIGRAM, QD
     Route: 048
  4. DOPTELET [Suspect]
     Active Substance: AVATROMBOPAG MALEATE
     Dosage: 20 MILLIGRAM, MONDAY, WEDNESDAY AND FRIDAY
     Route: 048
     Dates: start: 20200205

REACTIONS (3)
  - Platelet count increased [Recovered/Resolved]
  - Therapeutic response unexpected [Unknown]
  - Product use in unapproved indication [Unknown]

NARRATIVE: CASE EVENT DATE: 20200108
